FAERS Safety Report 7130731-4 (Version None)
Quarter: 2010Q4

REPORT INFORMATION
  Report Type: 
  Country: None (occurrence: None)
  Receive Date: 20101201
  Receipt Date: 20101117
  Transmission Date: 20110411
  Serious: Yes (Hospitalization, Other)
  Sender: FDA-Public Use
  Company Number: CA-ROCHE-557524

PATIENT
  Sex: Male

DRUGS (7)
  1. TAMIFLU [Suspect]
     Route: 048
     Dates: start: 20080328, end: 20080401
  2. CLONAZEPAM [Concomitant]
     Route: 048
  3. OLANZAPINE [Concomitant]
     Dosage: 20 MG AT BED TIME AND 7.5 MG IN THE MORNING
     Route: 048
  4. TEGRETOL [Concomitant]
     Route: 048
  5. TOPAMAX [Concomitant]
     Route: 048
  6. ENALAPRIL [Concomitant]
     Indication: HYPERTENSION
     Route: 048
  7. RAMIPRIL [Concomitant]
     Indication: HYPERTENSION
     Route: 048

REACTIONS (18)
  - ABNORMAL BEHAVIOUR [None]
  - ASTHENIA [None]
  - BODY TEMPERATURE DECREASED [None]
  - CONVULSION [None]
  - COORDINATION ABNORMAL [None]
  - DIARRHOEA [None]
  - DYSKINESIA [None]
  - FALL [None]
  - FATIGUE [None]
  - FEELING ABNORMAL [None]
  - GAIT DISTURBANCE [None]
  - HEADACHE [None]
  - HYPERTENSION [None]
  - LETHARGY [None]
  - MALAISE [None]
  - RESPIRATORY RATE INCREASED [None]
  - URINARY INCONTINENCE [None]
  - VOMITING [None]
